FAERS Safety Report 4469669-X (Version None)
Quarter: 2004Q3

REPORT INFORMATION
  Report Type: 
  Country: None (occurrence: None)
  Receive Date: 20040917
  Receipt Date: 20040828
  Transmission Date: 20050211
  Serious: Yes (Hospitalization)
  Sender: FDA-Public Use
  Company Number: 2003-BP-04281BP(1)

PATIENT
  Age: 18 Year
  Sex: Female
  Weight: 59.4 kg

DRUGS (5)
  1. VIRAMUNE [Suspect]
     Indication: HIV INFECTION
     Dosage: SEE IMAGE
     Route: 048
     Dates: start: 20030204, end: 20030218
  2. VIRAMUNE [Suspect]
     Indication: HIV INFECTION
     Dosage: SEE IMAGE
     Route: 048
     Dates: start: 20030218, end: 20030303
  3. COMBIVIR [Suspect]
     Indication: HIV INFECTION
     Dosage: 2 DAILY (NR, 2 IN 1 D), PO
     Route: 048
     Dates: start: 20030204, end: 20030325
  4. PRENATAL VITAMINS [Concomitant]
  5. FERROUS SULFATE TAB [Concomitant]

REACTIONS (1)
  - STEVENS-JOHNSON SYNDROME [None]
